FAERS Safety Report 12898785 (Version 1)
Quarter: 2016Q4

REPORT INFORMATION
  Report Type: Report from Study
  Country: US (occurrence: US)
  Receive Date: 20161101
  Receipt Date: 20161101
  Transmission Date: 20170207
  Serious: Yes (Hospitalization, Other)
  Sender: FDA-Public Use
  Company Number: US-AMGEN-USACT2016147777

PATIENT
  Age: 67 Year
  Sex: Male
  Weight: 89.34 kg

DRUGS (9)
  1. CALCIUM +D [Concomitant]
     Active Substance: CALCIUM\VITAMIN D
     Dosage: UNK UNK, BID
     Route: 048
  2. DEXAMETHASONE. [Suspect]
     Active Substance: DEXAMETHASONE
     Indication: PLASMA CELL MYELOMA
     Dosage: UNK, PER CHEMO REGIM
     Route: 065
  3. ACYCLOVIR. [Concomitant]
     Active Substance: ACYCLOVIR
     Dosage: 1 TABLET, BID
     Route: 048
  4. NEURONTIN [Concomitant]
     Active Substance: GABAPENTIN
     Dosage: 2 CAPSULES, QID
     Route: 048
  5. VITAMIN B12 [Concomitant]
     Active Substance: CYANOCOBALAMIN
     Dosage: 1000 MUG, QD
     Route: 060
  6. DOXORUBICIN [Suspect]
     Active Substance: DOXORUBICIN
     Indication: PLASMA CELL MYELOMA
     Dosage: UNK, PER CHEMO REGIM
     Route: 065
  7. CARFILZOMIB [Suspect]
     Active Substance: CARFILZOMIB
     Indication: PLASMA CELL MYELOMA
     Dosage: 56 MG/M2, PER CHEMO REGIM
     Route: 042
     Dates: start: 20150720
  8. TYLENOL [Concomitant]
     Active Substance: ACETAMINOPHEN
     Dosage: 325 MG, Q4H, AS NEEDED
     Route: 048
  9. BACTRIM DS [Concomitant]
     Active Substance: SULFAMETHOXAZOLE\TRIMETHOPRIM
     Dosage: 160-800 MG TABLET, UNK

REACTIONS (2)
  - Deep vein thrombosis [Unknown]
  - Cellulitis [Unknown]

NARRATIVE: CASE EVENT DATE: 20161020
